FAERS Safety Report 15121458 (Version 1)
Quarter: 2018Q3

REPORT INFORMATION
  Report Type: Spontaneous
  Country: US (occurrence: US)
  Receive Date: 20180613
  Receipt Date: 20180613
  Transmission Date: 20181010
  Serious: Yes (Disabling)
  Sender: FDA-Public Use
  Company Number: None

PATIENT
  Age: 69 Year
  Sex: Female

DRUGS (5)
  1. MULTIPLE NECESSARY SUPPLEMENTS [Concomitant]
  2. APIDRA [Suspect]
     Active Substance: INSULIN GLULISINE
     Indication: TYPE 1 DIABETES MELLITUS
     Dosage: ?          QUANTITY:INJECTIONS AM + PM;?
     Dates: start: 20050616
  3. B?D INSULIN SYRINGES [Concomitant]
  4. CRAPPY BSA CLONED INSULIN [Concomitant]
  5. LEVOTHYROXIN [Concomitant]
     Active Substance: LEVOTHYROXINE

REACTIONS (1)
  - Product quality issue [None]
